FAERS Safety Report 16341716 (Version 10)
Quarter: 2019Q3

REPORT INFORMATION
  Report Type: Report from Study
  Country: IT (occurrence: IT)
  Receive Date: 20190522
  Receipt Date: 20190729
  Transmission Date: 20191004
  Serious: Yes (Hospitalization, Other)
  Sender: FDA-Public Use
  Company Number: IT-ACCORD-128108

PATIENT
  Age: 9 Year
  Sex: Male
  Weight: 37 kg

DRUGS (57)
  1. PEGASPARGASE [Suspect]
     Active Substance: PEGASPARGASE
     Indication: ACUTE LYMPHOCYTIC LEUKAEMIA
     Dosage: STRENGTH: 750 U/ML SOLUTION FOR INJECTION/INFUSION
     Route: 042
     Dates: start: 20180802, end: 20180827
  2. PURINETHOL [Suspect]
     Active Substance: MERCAPTOPURINE
     Indication: ACUTE LYMPHOCYTIC LEUKAEMIA
     Route: 042
     Dates: start: 20180910
  3. ZOFRAN [Concomitant]
     Active Substance: ONDANSETRON HYDROCHLORIDE
     Indication: PROPHYLAXIS OF NAUSEA AND VOMITING
     Dosage: ALSO RECEIVED FROM 27-SEP-2018 TO 30-SEP-2018, CD: 24 MG
     Route: 042
     Dates: start: 20180723, end: 20180813
  4. ZYLORIC [Concomitant]
     Active Substance: ALLOPURINOL
     Dosage: CD: 2100 MG
     Route: 048
     Dates: start: 20180720, end: 20180728
  5. DILATREND [Concomitant]
     Active Substance: CARVEDILOL
     Route: 048
     Dates: start: 20180809
  6. PARACETAMOL [Concomitant]
     Active Substance: ACETAMINOPHEN
     Indication: PYREXIA
     Route: 042
     Dates: start: 20180812
  7. GLAZIDIM [Concomitant]
     Active Substance: CEFTAZIDIME
     Indication: AEROMONAS INFECTION
     Route: 042
     Dates: start: 20180812, end: 20180818
  8. MYELOSTIM [Suspect]
     Active Substance: LENOGRASTIM
     Indication: APLASIA
     Route: 058
     Dates: start: 20181209, end: 20181210
  9. CYCLOPHOSPHAMIDE. [Suspect]
     Active Substance: CYCLOPHOSPHAMIDE
     Indication: ACUTE LYMPHOCYTIC LEUKAEMIA
     Route: 042
     Dates: start: 20181130, end: 20181130
  10. DELTACORTENE [Concomitant]
     Active Substance: PREDNISONE
     Dosage: CD: 700 MG
     Route: 048
     Dates: start: 20180727
  11. AUGMENTIN [Concomitant]
     Active Substance: AMOXICILLIN\CLAVULANATE POTASSIUM
     Dates: start: 20180913, end: 20180927
  12. VINCRISTINE [Suspect]
     Active Substance: VINCRISTINE
     Indication: ACUTE LYMPHOCYTIC LEUKAEMIA
     Route: 042
     Dates: start: 20180727, end: 20180830
  13. ANTITHROMBIN III [Concomitant]
     Active Substance: ANTITHROMBIN III HUMAN
     Indication: PREMEDICATION
     Dosage: ALSO RECEIVED FROM 13-SEP-2018 TO 17-SEP-2018, ALSO RECEIVED 500 IU FROM 06-AUG-2018 TO 21-AUG-2018
     Route: 042
     Dates: start: 20180806, end: 20180821
  14. URBASON [Concomitant]
     Active Substance: METHYLPREDNISOLONE
     Indication: PREMEDICATION
     Route: 037
     Dates: start: 20180723, end: 20181015
  15. PARACETAMOL [Concomitant]
     Active Substance: ACETAMINOPHEN
  16. RANITIDINE. [Concomitant]
     Active Substance: RANITIDINE
     Route: 048
  17. PURINETHOL [Concomitant]
     Active Substance: MERCAPTOPURINE
     Indication: ACUTE LYMPHOCYTIC LEUKAEMIA
     Route: 048
     Dates: start: 20181108, end: 20181120
  18. PEGASPARGASE [Suspect]
     Active Substance: PEGASPARGASE
     Indication: ACUTE LYMPHOCYTIC LEUKAEMIA
     Dosage: STRENGTH: 750 U/ML SOLUTION FOR INJECTION/INFUSION
     Route: 042
     Dates: start: 20181204, end: 20181226
  19. IMMUNOGLOBULIN HUMAN NORMAL [Concomitant]
     Active Substance: HUMAN IMMUNOGLOBULIN G
     Route: 042
     Dates: start: 20181207, end: 20181207
  20. VINDESINE [Suspect]
     Active Substance: VINDESINE
     Indication: ACUTE LYMPHOCYTIC LEUKAEMIA
     Dates: start: 20181221, end: 20181226
  21. MYCOSTATIN [Concomitant]
     Active Substance: NYSTATIN
     Dosage: CD: 105 ML AND 255 ML
     Route: 048
     Dates: start: 20180720
  22. URBASON [Concomitant]
     Active Substance: METHYLPREDNISOLONE
     Indication: PREMEDICATION
     Dosage: CD: 3280 MG
     Route: 042
     Dates: start: 20180721
  23. DEURSI [Concomitant]
     Route: 048
     Dates: start: 20180811
  24. PRIVIGEN [Concomitant]
     Active Substance: HUMAN IMMUNOGLOBULIN G
     Route: 042
     Dates: start: 20180811, end: 20180812
  25. AMIKACIN. [Concomitant]
     Active Substance: AMIKACIN
     Indication: AEROMONAS INFECTION
     Route: 042
     Dates: start: 20180812, end: 20180818
  26. FLEBOCORTID RICHTER [Concomitant]
     Indication: PREMEDICATION
     Route: 042
  27. PARACETAMOL [Concomitant]
     Active Substance: ACETAMINOPHEN
     Indication: PYREXIA
     Route: 042
     Dates: start: 20181207, end: 20181207
  28. UROMITEXAN [Suspect]
     Active Substance: MESNA
     Indication: ACUTE LYMPHOCYTIC LEUKAEMIA
     Dosage: STRENGTH: 400 MG / 4 ML SOLUTION FOR INJECTION FOR INTRAVENOUS USE
     Route: 042
     Dates: start: 20181201, end: 20181202
  29. METHOTREXATE. [Suspect]
     Active Substance: METHOTREXATE
     Indication: ACUTE LYMPHOCYTIC LEUKAEMIA
     Route: 037
     Dates: start: 20180723, end: 20181015
  30. ARACYTIN [Suspect]
     Active Substance: CYTARABINE
     Indication: ACUTE LYMPHOCYTIC LEUKAEMIA
     Dosage: LAST RECEIVED ON 18-OCT-2018
     Route: 042
     Dates: start: 20180910
  31. CYCLOPHOSPHAMIDE. [Suspect]
     Active Substance: CYCLOPHOSPHAMIDE
     Indication: ACUTE LYMPHOCYTIC LEUKAEMIA
     Route: 042
     Dates: start: 20180906, end: 20181020
  32. OMEPRAZOLE. [Concomitant]
     Active Substance: OMEPRAZOLE
     Dosage: CD: 120 MG, 320MG
     Route: 042
     Dates: start: 20180721
  33. LEDERFOLIN [Concomitant]
     Active Substance: LEUCOVORIN CALCIUM
     Route: 042
     Dates: start: 20181201, end: 20181201
  34. CIPROXIN [Concomitant]
     Active Substance: CIPROFLOXACIN
     Dosage: 250 MGX2 / DAY FROM 10/12
     Dates: start: 201210
  35. MYELOSTIM [Suspect]
     Active Substance: LENOGRASTIM
     Indication: APLASIA
     Route: 058
     Dates: start: 20181211, end: 20181215
  36. UROMITEXAN [Suspect]
     Active Substance: MESNA
     Indication: ACUTE LYMPHOCYTIC LEUKAEMIA
     Dosage: STRENGTH: 400 MG / 4 ML SOLUTION FOR INJECTION FOR INTRAVENOUS USE
     Route: 042
     Dates: start: 20180906, end: 20181020
  37. TRIMETON [Concomitant]
     Active Substance: CHLORPHENIRAMINE MALEATE
     Route: 042
     Dates: start: 20180917, end: 20180917
  38. IMMUNOGLOBULIN HUMAN NORMAL [Concomitant]
     Active Substance: HUMAN IMMUNOGLOBULIN G
     Dates: start: 20180917, end: 20180917
  39. DECADRON [Concomitant]
     Active Substance: DEXAMETHASONE
     Route: 048
  40. METHOTREXATE. [Suspect]
     Active Substance: METHOTREXATE
     Indication: ACUTE LYMPHOCYTIC LEUKAEMIA
     Route: 042
     Dates: start: 20181115, end: 20181221
  41. DILATREND [Concomitant]
     Active Substance: CARVEDILOL
     Route: 048
     Dates: start: 20180809
  42. MYELOSTIM [Suspect]
     Active Substance: LENOGRASTIM
     Indication: APLASIA
     Route: 058
     Dates: start: 20180917, end: 20180918
  43. ENAPREN [Concomitant]
     Active Substance: ENALAPRIL MALEATE
     Indication: HYPERTENSION
     Dosage: CD: 15 MG
     Route: 048
     Dates: start: 20180803, end: 20180903
  44. DIFLUCAN [Concomitant]
     Active Substance: FLUCONAZOLE
     Route: 048
     Dates: start: 20180808, end: 20180821
  45. DEBRIDAT [Concomitant]
     Active Substance: TRIMEBUTINE MALEATE
     Route: 042
     Dates: start: 20181207, end: 20181210
  46. UROMITEXAN [Suspect]
     Active Substance: MESNA
     Indication: ACUTE LYMPHOCYTIC LEUKAEMIA
     Dosage: STRENGTH: 400 MG / 4 ML SOLUTION FOR INJECTION FOR INTRAVENOUS USE
     Route: 042
     Dates: start: 20181203, end: 20181203
  47. CYCLOPHOSPHAMIDE. [Suspect]
     Active Substance: CYCLOPHOSPHAMIDE
     Indication: ACUTE LYMPHOCYTIC LEUKAEMIA
     Route: 042
     Dates: start: 20181201, end: 20181202
  48. TRIMETON [Concomitant]
     Active Substance: CHLORPHENIRAMINE MALEATE
     Indication: PREMEDICATION
     Route: 042
     Dates: start: 20180917, end: 20180917
  49. DAUNORUBICIN [Suspect]
     Active Substance: DAUNORUBICIN
     Indication: ACUTE LYMPHOCYTIC LEUKAEMIA
     Route: 042
     Dates: start: 20180727, end: 20180830
  50. IFOSFAMIDE. [Suspect]
     Active Substance: IFOSFAMIDE
     Indication: ACUTE LYMPHOCYTIC LEUKAEMIA
     Route: 042
     Dates: start: 20181223, end: 20181224
  51. PAXABEL [Concomitant]
     Dosage: ALSO RECEIVED 10 G FROM 03-AUG-2018  TO 10-AUG-2018 CD: 30 G
     Route: 048
     Dates: start: 20180803, end: 20180810
  52. FUROSEMIDE. [Concomitant]
     Active Substance: FUROSEMIDE
     Dosage: CD: 37.5 MG
     Route: 048
     Dates: start: 20180803
  53. BACTRIM [Concomitant]
     Active Substance: SULFAMETHOXAZOLE\TRIMETHOPRIM
     Route: 048
     Dates: start: 20180720
  54. DIAMOX SEQUELS [Concomitant]
     Active Substance: ACETAZOLAMIDE
     Route: 048
  55. BACILLUS SUBTILIS [Concomitant]
     Active Substance: BACILLUS SUBTILIS
     Indication: DIARRHOEA
     Dosage: 1 FL / DAY
     Dates: start: 201207
  56. OMEPRAZOLE. [Concomitant]
     Active Substance: OMEPRAZOLE
     Dosage: CD: 120 MG, 320MG
     Route: 042
     Dates: start: 20180721
  57. VINCRISTINE [Suspect]
     Active Substance: VINCRISTINE
     Indication: ACUTE LYMPHOCYTIC LEUKAEMIA
     Route: 042
     Dates: start: 20181129, end: 20181204

REACTIONS (31)
  - Ventricular arrhythmia [Recovering/Resolving]
  - Hepatotoxicity [Recovered/Resolved]
  - Aeromonas infection [Recovered/Resolved]
  - Electrocardiogram repolarisation abnormality [Recovering/Resolving]
  - Rectal tenesmus [Recovered/Resolved]
  - Asthenia [Recovered/Resolved]
  - Vomiting [Recovered/Resolved]
  - Nausea [Recovered/Resolved]
  - Stomatitis [Recovered/Resolved]
  - Abdominal pain [Recovered/Resolved]
  - Migraine [Recovering/Resolving]
  - Hyperbilirubinaemia [Recovered/Resolved]
  - Bone pain [Recovered/Resolved]
  - Sinus tachycardia [Recovering/Resolving]
  - Ocular icterus [Recovered/Resolved]
  - Headache [Recovered/Resolved]
  - Salivary hypersecretion [Recovered/Resolved]
  - Aplasia [Recovered/Resolved]
  - Coating in mouth [Recovering/Resolving]
  - Oral pain [Recovered/Resolved]
  - Constipation [Recovered/Resolved]
  - Blood pressure increased [Recovered/Resolved]
  - Leukopenia [Recovering/Resolving]
  - Diarrhoea [Recovered/Resolved]
  - Pyrexia [Recovered/Resolved]
  - Stomatitis [Recovered/Resolved]
  - Oropharyngeal pain [Recovered/Resolved]
  - Abdominal pain upper [Recovered/Resolved]
  - Back pain [Recovered/Resolved]
  - Flatulence [Recovered/Resolved]
  - Proctalgia [Recovered/Resolved]

NARRATIVE: CASE EVENT DATE: 20180726
